FAERS Safety Report 7141049-8 (Version None)
Quarter: 2010Q4

REPORT INFORMATION
  Report Type: 
  Country: None (occurrence: None)
  Receive Date: 20101122
  Receipt Date: 20101112
  Transmission Date: 20110411
  Serious: Yes (Hospitalization, Disabling, Other)
  Sender: FDA-Public Use
  Company Number: 017117

PATIENT
  Sex: Female
  Weight: 45 kg

DRUGS (6)
  1. NEUPRO [Suspect]
     Indication: PARKINSON'S DISEASE
     Dosage: (2 MG QD TRANSDERMAL), (4 MG QD TRANSDERMAL)
     Route: 062
     Dates: start: 20100507, end: 20100628
  2. NEUPRO [Suspect]
     Indication: PARKINSON'S DISEASE
     Dosage: (2 MG QD TRANSDERMAL), (4 MG QD TRANSDERMAL)
     Route: 062
     Dates: start: 20100629
  3. ISICOM (ISICOM) (NOT SPECIFIED) [Suspect]
     Indication: PARKINSON'S DISEASE
     Dosage: (125 MG 6X/DAY)
     Dates: start: 19950516
  4. ENALAPRIL MALEATE [Suspect]
     Indication: HYPERTENSION
     Dosage: (10 MG BID)
     Dates: start: 20090525
  5. TRAWELL (RAWEL) (NOT SPECIFIED) [Suspect]
     Indication: HYPERTENSION
     Dosage: (1.5 MG QD)
     Dates: start: 20090525
  6. DRIPTANE [Concomitant]

REACTIONS (5)
  - DIZZINESS [None]
  - FALL [None]
  - FEMUR FRACTURE [None]
  - HYPOTENSION [None]
  - TRANSIENT ISCHAEMIC ATTACK [None]
